FAERS Safety Report 10023661 (Version 1)
Quarter: 2014Q1

REPORT INFORMATION
  Report Type: Spontaneous
  Country: US (occurrence: None)
  Receive Date: 20140304
  Receipt Date: 20140304
  Transmission Date: 20141002
  Serious: Yes (Life-Threatening, Other)
  Sender: FDA-Public Use
  Company Number: RB-59535-2013

PATIENT
  Sex: Female
  Weight: .68 kg

DRUGS (1)
  1. BUPRENORPHINE W/ NALOXONE [Suspect]
     Indication: ACCIDENTAL EXPOSURE TO PRODUCT
     Dosage: (DOSING DETAILS UNKNOWN ORAL)
     Dates: start: 20131009, end: 20131009

REACTIONS (7)
  - Accidental exposure to product [None]
  - Salivary hypersecretion [None]
  - Mucosal discolouration [None]
  - Miosis [None]
  - Respiratory rate decreased [None]
  - Somnolence [None]
  - Dysstasia [None]
